FAERS Safety Report 14318911 (Version 1)
Quarter: 2017Q4

REPORT INFORMATION
  Report Type: Spontaneous
  Country: US (occurrence: US)
  Receive Date: 20171222
  Receipt Date: 20171222
  Transmission Date: 20180321
  Serious: Yes (Death, Hospitalization, Other)
  Sender: FDA-Public Use
  Company Number: US-IPSEN BIOPHARMACEUTICALS, INC.-2017-15885

PATIENT
  Age: 83 Year
  Sex: Female

DRUGS (7)
  1. BOTULINUM TOXIN NOS [Suspect]
     Active Substance: BOTULINUM TOXIN NOS
     Indication: OESOPHAGEAL ACHALASIA
     Dosage: NOT REPORTED
  2. BOTULINUM TOXIN NOS [Suspect]
     Active Substance: BOTULINUM TOXIN NOS
     Indication: OFF LABEL USE
  3. VANCOMYCIN [Suspect]
     Active Substance: VANCOMYCIN
     Indication: SUBDIAPHRAGMATIC ABSCESS
  4. MEROPENEM. [Suspect]
     Active Substance: MEROPENEM
     Indication: SEPTIC SHOCK
  5. PIPERACILLIN/TAZOBACTAM [Suspect]
     Active Substance: PIPERACILLIN SODIUM\TAZOBACTAM SODIUM
     Indication: SUBDIAPHRAGMATIC ABSCESS
  6. AMPICILLIN/SULBACTAM [Suspect]
     Active Substance: AMPICILLIN SODIUM\SULBACTAM SODIUM
     Indication: SUBDIAPHRAGMATIC ABSCESS
  7. VANCOMYCIN [Suspect]
     Active Substance: VANCOMYCIN
     Indication: SEPTIC SHOCK

REACTIONS (12)
  - Death [Fatal]
  - Generalised oedema [Unknown]
  - Atrial fibrillation [Unknown]
  - Pleural effusion [Unknown]
  - Respiratory failure [Unknown]
  - Septic shock [Unknown]
  - Hepatic ischaemia [Unknown]
  - Off label use [Unknown]
  - Subdiaphragmatic abscess [Unknown]
  - Unresponsive to stimuli [Unknown]
  - Acute kidney injury [Unknown]
  - Musculoskeletal pain [Unknown]
